FAERS Safety Report 4838572-5 (Version None)
Quarter: 2005Q4

REPORT INFORMATION
  Report Type: 
  Country: None (occurrence: None)
  Receive Date: 20051123
  Receipt Date: 20051123
  Transmission Date: 20060501
  Serious: No
  Sender: FDA-Public Use
  Company Number: None

PATIENT
  Age: 81 Year
  Sex: Male
  Weight: 77.7 kg

DRUGS (9)
  1. RITUXIMAB [Suspect]
     Indication: LYMPHOMA
     Dosage: 750MG,VARIOUS, INTRAVEN
     Route: 042
  2. LACTULOSE [Concomitant]
  3. ACYCLOVIR [Concomitant]
  4. NYSTATIN [Concomitant]
  5. SYNTHROID [Concomitant]
  6. CBOC-GENTAMICIN SULFATE [Concomitant]
  7. OMEPRAZOLE [Concomitant]
  8. FINASTERIDE [Concomitant]
  9. TERAZOSIN HCL [Concomitant]

REACTIONS (5)
  - CHEST DISCOMFORT [None]
  - CHILLS [None]
  - DYSPNOEA [None]
  - FEELING ABNORMAL [None]
  - INFUSION RELATED REACTION [None]
